FAERS Safety Report 4452165-3 (Version None)
Quarter: 2004Q3

REPORT INFORMATION
  Report Type: 
  Country: None (occurrence: None)
  Receive Date: 20040916
  Receipt Date: 20040916
  Transmission Date: 20050211
  Serious: No
  Sender: FDA-Public Use
  Company Number: None

PATIENT
  Age: 57 Year
  Sex: Female
  Weight: 82.2 kg

DRUGS (5)
  1. GEMZAR [Suspect]
     Indication: LUNG NEOPLASM MALIGNANT
     Dosage: 1440 MG IV Q21 DAY
     Dates: start: 20040616, end: 20040825
  2. CARBOPLATIN [Suspect]
     Indication: LUNG NEOPLASM MALIGNANT
     Dosage: 514 MG IV Q21 DAY
     Route: 042
     Dates: start: 20040616, end: 20040825
  3. PROTONIX [Concomitant]
  4. LEXAPRO [Concomitant]
  5. VITAMIN [Concomitant]

REACTIONS (2)
  - SUBCLAVIAN VEIN THROMBOSIS [None]
  - THROMBOSIS [None]
